FAERS Safety Report 9783042 (Version 1)
Quarter: 2013Q4

REPORT INFORMATION
  Report Type: Report from Study
  Country: FR (occurrence: FR)
  Receive Date: 20131226
  Receipt Date: 20131226
  Transmission Date: 20140711
  Serious: Yes (Hospitalization, Other)
  Sender: FDA-Public Use
  Company Number: FR-ASTELLAS-2013US013381

PATIENT
  Age: 61 Year
  Sex: Male

DRUGS (3)
  1. ERLOTINIB TABLET [Suspect]
     Indication: COLORECTAL CANCER
     Dosage: 150 MG, UID/QD
     Route: 048
     Dates: start: 20100408, end: 20100824
  2. BEVACIZUMAB [Suspect]
     Indication: COLORECTAL CANCER
     Dosage: 555 MG, EVERY 3 WEEKS
     Route: 042
     Dates: start: 20100408
  3. BIPRETERAX                         /06377001/ [Concomitant]
     Indication: PRODUCT USED FOR UNKNOWN INDICATION
     Dosage: UNK
     Route: 065

REACTIONS (2)
  - Off label use [None]
  - Rhabdomyolysis [Recovered/Resolved]
